FAERS Safety Report 10687924 (Version 2)
Quarter: 2015Q1

REPORT INFORMATION
  Report Type: Spontaneous
  Country: CN (occurrence: CN)
  Receive Date: 20150102
  Receipt Date: 20150108
  Transmission Date: 20150720
  Serious: Yes (Hospitalization)
  Sender: FDA-Public Use
  Company Number: CN-SA-2014SA178265

PATIENT
  Age: 40 Year
  Sex: Female

DRUGS (12)
  1. HEPARIN SODIUM. [Concomitant]
     Active Substance: HEPARIN SODIUM
     Dosage: DOSE:50 UNIT(S)
     Route: 042
     Dates: start: 20141127, end: 20141222
  2. ASPIRIN. [Concomitant]
     Active Substance: ASPIRIN
     Indication: ANTICOAGULANT THERAPY
     Dosage: ENTERIC COATED TABLETS
     Route: 048
     Dates: start: 20141127, end: 20141222
  3. VITAMIN D NOS/CALCIUM CARBONATE [Concomitant]
     Indication: MINERAL SUPPLEMENTATION
     Route: 048
     Dates: start: 20141203, end: 20141222
  4. PREDNISOLONE ACETATE. [Suspect]
     Active Substance: PREDNISOLONE ACETATE
     Indication: UNEVALUABLE EVENT
     Route: 048
     Dates: start: 20141222
  5. FLUTICASONE PROPIONATE. [Concomitant]
     Active Substance: FLUTICASONE PROPIONATE
     Dosage: FORM: NASAL SPRAY?ROUTE: NASAL DRIP
     Dates: start: 20141129, end: 20141222
  6. COAPROVEL [Suspect]
     Active Substance: HYDROCHLOROTHIAZIDE\IRBESARTAN
     Route: 048
     Dates: start: 20141127, end: 20141130
  7. DEXTRAN [Concomitant]
     Active Substance: DEXTRAN
     Dosage: ROUTE; IVGTT
     Dates: start: 20141127, end: 20141210
  8. PIPERAZINE [Concomitant]
     Active Substance: PIPERAZINE
     Indication: PROPHYLAXIS
     Route: 048
     Dates: start: 20141127, end: 20141222
  9. ASTRAGALUS POLYSACCHARIDES [Concomitant]
     Dosage: ROUTE; IV GTT
     Dates: start: 20141128, end: 20141222
  10. PREDNISOLONE ACETATE. [Suspect]
     Active Substance: PREDNISOLONE ACETATE
     Indication: UNEVALUABLE EVENT
     Route: 048
     Dates: start: 20141202, end: 20141205
  11. COAPROVEL [Suspect]
     Active Substance: HYDROCHLOROTHIAZIDE\IRBESARTAN
     Route: 048
     Dates: start: 20141201, end: 20141213
  12. CALCITRIOL. [Concomitant]
     Active Substance: CALCITRIOL
     Indication: MINERAL SUPPLEMENTATION
     Route: 048
     Dates: start: 20141203, end: 20141222

REACTIONS (1)
  - Hepatic failure [Recovered/Resolved]

NARRATIVE: CASE EVENT DATE: 20141212
